FAERS Safety Report 14982225 (Version 1)
Quarter: 2018Q2

REPORT INFORMATION
  Report Type: Spontaneous
  Country: IT (occurrence: IT)
  Receive Date: 20180607
  Receipt Date: 20180607
  Transmission Date: 20180711
  Serious: Yes (Other)
  Sender: FDA-Public Use
  Company Number: IT-ALKEM LABORATORIES LIMITED-IT-ALKEM-2018-03738

PATIENT
  Age: 16 Year

DRUGS (2)
  1. LINEZOLID. [Suspect]
     Active Substance: LINEZOLID
     Indication: SKIN INFECTION
     Dosage: 11 MG/KG, BID (Q12H)
  2. LINEZOLID. [Suspect]
     Active Substance: LINEZOLID
     Indication: OTITIS MEDIA
     Dosage: 9 MG/KG, BID (Q12H)
     Route: 065

REACTIONS (2)
  - Treatment failure [Unknown]
  - Drug resistance [Unknown]
